FAERS Safety Report 4875830-2 (Version None)
Quarter: 2006Q1

REPORT INFORMATION
  Report Type: 
  Country: None (occurrence: None)
  Receive Date: 20060109
  Receipt Date: 20050505
  Transmission Date: 20060701
  Serious: Yes (Death, Hospitalization, Other)
  Sender: FDA-Public Use
  Company Number: US-MERCK-0505USA00745

PATIENT
  Age: 53 Year
  Sex: Female
  Weight: 59 kg

DRUGS (2)
  1. VIOXX [Suspect]
     Indication: BACK PAIN
     Route: 048
     Dates: start: 20030613, end: 20040405
  2. VIOXX [Suspect]
     Indication: ARTHRALGIA
     Route: 048
     Dates: start: 20030613, end: 20040405

REACTIONS (10)
  - BRAIN OEDEMA [None]
  - CARDIO-RESPIRATORY ARREST [None]
  - DEATH [None]
  - DILATATION VENTRICULAR [None]
  - HEPATIC ENZYME INCREASED [None]
  - HYPERTENSION [None]
  - MULTIPLE SCLEROSIS [None]
  - SYNCOPE [None]
  - URINARY INCONTINENCE [None]
  - VENTRICULAR HYPERTROPHY [None]
